FAERS Safety Report 24629657 (Version 1)
Quarter: 2024Q4

REPORT INFORMATION
  Report Type: Spontaneous
  Country: DE (occurrence: DE)
  Receive Date: 20241118
  Receipt Date: 20241118
  Transmission Date: 20250115
  Serious: Yes (Life-Threatening, Hospitalization)
  Sender: TEVA
  Company Number: DE-TEVA-VS-3264131

PATIENT
  Age: 2 Year
  Sex: Male

DRUGS (11)
  1. BUSULFAN [Suspect]
     Active Substance: BUSULFAN
     Indication: Neuroblastoma
     Dosage: CONSOLIDATION THERAPY
     Route: 042
  2. DACARBAZINE [Concomitant]
     Active Substance: DACARBAZINE
     Indication: Neuroblastoma
     Dosage: INDUCTION POLYCHEMOTHERAPY
     Route: 065
  3. CISPLATIN [Concomitant]
     Active Substance: CISPLATIN
     Indication: Neuroblastoma
     Dosage: INDUCTION POLYCHEMOTHERAPY
     Route: 065
  4. IFOSFAMIDE [Concomitant]
     Active Substance: IFOSFAMIDE
     Indication: Neuroblastoma
     Dosage: INDUCTION POLYCHEMOTHERAPY
     Route: 065
  5. DEFIBROTIDE [Concomitant]
     Active Substance: DEFIBROTIDE (BOVINE)
     Indication: Venoocclusive liver disease
     Route: 065
  6. Dinutuximab-beta [Concomitant]
     Indication: Neuroblastoma
     Dosage: 5 CYCLES OF MAINTENANCE IMMUNOTHERAPY
     Route: 065
  7. VINDESINE [Concomitant]
     Active Substance: VINDESINE
     Indication: Neuroblastoma
     Dosage: INDUCTION POLYCHEMOTHERAPY
     Route: 065
  8. ETOPOSIDE [Concomitant]
     Active Substance: ETOPOSIDE
     Indication: Neuroblastoma
     Dosage: INDUCTION POLYCHEMOTHERAPY
     Route: 065
  9. VINCRISTINE [Concomitant]
     Active Substance: VINCRISTINE
     Indication: Neuroblastoma
     Dosage: INDUCTION POLYCHEMOTHERAPY
     Route: 065
  10. DOXORUBICIN [Concomitant]
     Active Substance: DOXORUBICIN
     Indication: Neuroblastoma
     Dosage: INDUCTION POLYCHEMOTHERAPY
     Route: 065
  11. MELPHALAN [Concomitant]
     Active Substance: MELPHALAN
     Indication: Neuroblastoma
     Dosage: CONSOLIDATION THERAPY
     Route: 065

REACTIONS (2)
  - Pulmonary toxicity [Recovered/Resolved]
  - Respiratory failure [Recovered/Resolved]
